FAERS Safety Report 22293115 (Version 3)
Quarter: 2023Q2

REPORT INFORMATION
  Report Type: Spontaneous
  Country: US (occurrence: US)
  Receive Date: 20230508
  Receipt Date: 20230609
  Transmission Date: 20230722
  Serious: Yes (Other)
  Sender: FDA-Public Use
  Company Number: US-APELLIS PHARMACEUTICALS-APL-2023-002343

PATIENT
  Sex: Female

DRUGS (1)
  1. SYFOVRE [Suspect]
     Active Substance: PEGCETACOPLAN
     Indication: Neovascular age-related macular degeneration
     Dosage: UNK

REACTIONS (7)
  - Blindness transient [Recovered/Resolved]
  - Intraocular pressure increased [Unknown]
  - Vision blurred [Recovered/Resolved]
  - Photopsia [Unknown]
  - Ocular hyperaemia [Recovered/Resolved]
  - Vitreous floaters [Recovering/Resolving]
  - Foreign body sensation in eyes [Recovered/Resolved]
